FAERS Safety Report 6862983-X (Version None)
Quarter: 2010Q3

REPORT INFORMATION
  Report Type: 
  Country: None (occurrence: None)
  Receive Date: 20100719
  Receipt Date: 20100702
  Transmission Date: 20110219
  Serious: Yes (Other)
  Sender: FDA-Public Use
  Company Number: 2010002384

PATIENT
  Age: 68 Year
  Sex: Male
  Weight: 53 kg

DRUGS (6)
  1. ERLOTINIB HYDROCHLORIDE [Suspect]
     Indication: LUNG SQUAMOUS CELL CARCINOMA STAGE UNSPECIFIED
     Dosage: 150 MG, QD, ORAL
     Route: 048
     Dates: start: 20090525, end: 20100323
  2. LOXONIN (LOXOPROFEN SODIUM) [Concomitant]
  3. MUCOSTA (REBAMIPIDE) [Concomitant]
  4. NORVASC [Concomitant]
  5. OXYCONTN (OXYCONDONE HYDROCHLORIDE) [Concomitant]
  6. OXINORM (ORGOTEIN) [Concomitant]

REACTIONS (3)
  - GASTRIC CANCER [None]
  - LUNG SQUAMOUS CELL CARCINOMA STAGE III [None]
  - MALIGNANT NEOPLASM PROGRESSION [None]
